FAERS Safety Report 4265762-5 (Version None)
Quarter: 2004Q1

REPORT INFORMATION
  Report Type: 
  Country: None (occurrence: None)
  Receive Date: 20040107
  Receipt Date: 20040107
  Transmission Date: 20041129
  Serious: Yes (Hospitalization)
  Sender: FDA-Public Use
  Company Number: None

PATIENT
  Age: 68 Year
  Sex: Female
  Weight: 63.2768 kg

DRUGS (6)
  1. CARBOPLATIN [Suspect]
     Indication: CARCINOMA
     Dosage: 184 MG WEEKLY INTRAVENOUS
     Route: 042
     Dates: start: 20031113, end: 20031218
  2. LISINOPRIL [Concomitant]
  3. ATENOLOL [Concomitant]
  4. PREVACID [Concomitant]
  5. LENOXYL [Concomitant]
  6. PACLITAXEL [Suspect]
     Indication: CARCINOMA
     Dosage: 65 MG WEEKLY IV
     Route: 042
     Dates: start: 20031113, end: 20031218

REACTIONS (3)
  - DEHYDRATION [None]
  - MARKEDLY REDUCED DIETARY INTAKE [None]
  - MUCOSAL INFLAMMATION [None]
